FAERS Safety Report 4426313-5 (Version None)
Quarter: 2004Q3

REPORT INFORMATION
  Report Type: 
  Country: None (occurrence: None)
  Receive Date: 20040811
  Receipt Date: 20040802
  Transmission Date: 20050211
  Serious: Yes (Hospitalization)
  Sender: FDA-Public Use
  Company Number: K200401150

PATIENT
  Age: 50 Year
  Sex: Female

DRUGS (4)
  1. EPINEPHRINE [Suspect]
     Dosage: 0.1 G/KG BODY WEIGHT/MIN; INTRAVENOUS
     Route: 042
  2. NOREPINEHRINE (NOREPINEPHRINE) [Suspect]
     Dosage: 0.5 G/KG BODY WEIGHT/MIN; INTRAVENOUS
     Route: 042
  3. METHOXAMINE (METHOXAMINE) [Suspect]
     Dosage: 12 G/KG BODY WEIGHT/MIN; INTRAVENOUS
     Route: 042
  4. ISOPROTERENOL (ISOPRENALINE) [Suspect]
     Dosage: 0.7 G/MIN'; INTRAVENOUS (SEE IMAGE)
     Route: 042

REACTIONS (4)
  - BLOOD PRESSURE SYSTOLIC INCREASED [None]
  - ELECTROCARDIOGRAM QT PROLONGED [None]
  - TACHYCARDIA [None]
  - VENTRICULAR ARRHYTHMIA [None]
